FAERS Safety Report 15779179 (Version 4)
Quarter: 2019Q2

REPORT INFORMATION
  Report Type: Spontaneous
  Country: TR (occurrence: TR)
  Receive Date: 20190101
  Receipt Date: 20190403
  Transmission Date: 20190711
  Serious: Yes (Other)
  Sender: FDA-Public Use
  Company Number: PHHY2018TR198084

PATIENT
  Age: 25 Year
  Sex: Male

DRUGS (2)
  1. SANDIMMUN NEORAL [Suspect]
     Active Substance: CYCLOSPORINE
     Indication: PROTEIN TOTAL DECREASED
     Dosage: 50 MG, BID
     Route: 065
     Dates: start: 20181227
  2. SANDIMMUN NEORAL [Suspect]
     Active Substance: CYCLOSPORINE
     Dosage: 100 MG, BID (MORNING AND EVENING)
     Route: 065
     Dates: start: 20190103

REACTIONS (13)
  - Blood pressure increased [Recovering/Resolving]
  - Pyrexia [Recovering/Resolving]
  - Influenza [Recovering/Resolving]
  - Heart rate decreased [Recovering/Resolving]
  - Abdominal pain [Recovered/Resolved]
  - Incorrect dose administered [Recovering/Resolving]
  - Product use in unapproved indication [Unknown]
  - Dysuria [Recovered/Resolved]
  - Abdominal distension [Recovering/Resolving]
  - Blood disorder [Recovering/Resolving]
  - Schizophrenia [Recovering/Resolving]
  - Mental disorder [Recovered/Resolved]
  - Wrong technique in product usage process [Recovering/Resolving]
